FAERS Safety Report 9738519 (Version 3)
Quarter: 2013Q4

REPORT INFORMATION
  Report Type: Report from Study
  Country: AU (occurrence: AU)
  Receive Date: 20131209
  Receipt Date: 20131211
  Transmission Date: 20140711
  Serious: No
  Sender: FDA-Public Use
  Company Number: AU-ROCHE-1237483

PATIENT
  Age: 57 Year
  Sex: Female

DRUGS (2)
  1. ACTEMRA [Suspect]
     Indication: RHEUMATOID ARTHRITIS
     Route: 042
     Dates: start: 20101007, end: 20130525
  2. ACTEMRA [Suspect]
     Route: 042
     Dates: start: 20101007

REACTIONS (3)
  - Cellulitis [Recovering/Resolving]
  - Rib fracture [Recovering/Resolving]
  - Skin ulcer [Not Recovered/Not Resolved]
